FAERS Safety Report 6678858-5 (Version None)
Quarter: 2010Q2

REPORT INFORMATION
  Report Type: 
  Country: None (occurrence: None)
  Receive Date: 20100412
  Receipt Date: 20100412
  Transmission Date: 20101027
  Serious: Yes (Life-Threatening)
  Sender: FDA-Public Use
  Company Number: None

PATIENT
  Sex: Male
  Weight: 88.905 kg

DRUGS (2)
  1. OPTIRAY 320 [Suspect]
     Indication: CHEST PAIN
     Dates: start: 20081008, end: 20081008
  2. OPTIRAY 320 [Suspect]
     Indication: CHEST PAIN
     Dates: start: 20081008, end: 20081008

REACTIONS (1)
  - THYROTOXIC CRISIS [None]
